FAERS Safety Report 15186837 (Version 2)
Quarter: 2019Q1

REPORT INFORMATION
  Report Type: Report from Study
  Country: US (occurrence: US)
  Receive Date: 20180723
  Receipt Date: 20190130
  Transmission Date: 20190417
  Serious: No
  Sender: FDA-Public Use
  Company Number: US-EXELIXIS-CABO-18012805

PATIENT
  Sex: Female

DRUGS (1)
  1. CABOMETYX [Suspect]
     Active Substance: CABOZANTINIB S-MALATE
     Indication: PRODUCT USED FOR UNKNOWN INDICATION
     Dosage: 40 MG, QD
     Route: 048
     Dates: start: 20180227

REACTIONS (11)
  - Myalgia [Unknown]
  - Menstrual disorder [Unknown]
  - Blood pressure abnormal [Unknown]
  - Alopecia [Unknown]
  - Skin ulcer [Unknown]
  - Tongue erythema [Unknown]
  - Headache [Unknown]
  - Glossitis [Unknown]
  - Muscle spasms [Unknown]
  - Fatigue [Not Recovered/Not Resolved]
  - Nausea [Not Recovered/Not Resolved]
